FAERS Safety Report 17023615 (Version 2)
Quarter: 2020Q2

REPORT INFORMATION
  Report Type: Spontaneous
  Country: BE (occurrence: BE)
  Receive Date: 20191113
  Receipt Date: 20200623
  Transmission Date: 20200713
  Serious: Yes (Hospitalization, Other)
  Sender: FDA-Public Use
  Company Number: BE-ROCHE-2463201

PATIENT
  Sex: Male

DRUGS (6)
  1. INUVAIR [Concomitant]
     Active Substance: BECLOMETHASONE DIPROPIONATE\FORMOTEROL FUMARATE
     Dosage: MOTHER DOSE: 200MG
     Route: 065
  2. XOLAIR [Suspect]
     Active Substance: OMALIZUMAB
     Indication: PRODUCT USED FOR UNKNOWN INDICATION
     Dosage: MOTHER DOSE: 375 MG/2WEEKS
     Route: 064
  3. ELOCON [Concomitant]
     Active Substance: MOMETASONE FUROATE
     Dosage: DOSING FORMULATION OF MOTHER: CREAM
     Route: 065
  4. NASONEX [Concomitant]
     Active Substance: MOMETASONE FUROATE
     Dosage: DOSING FREQUENCY FOR MOTHER: AS REQUIRED
     Route: 065
  5. NICOTINE. [Concomitant]
     Active Substance: NICOTINE
     Dosage: TAKEN BY MOTHER
     Route: 065
  6. PANTOMED [PANTOPRAZOLE SODIUM SESQUIHYDRATE] [Concomitant]
     Active Substance: PANTOPRAZOLE SODIUM
     Dosage: MOTHER DOSE: 20MG
     Route: 065

REACTIONS (4)
  - Cardiac murmur [Unknown]
  - Foetal exposure during pregnancy [Unknown]
  - Weight gain poor [Unknown]
  - Ventricular septal defect [Unknown]
